FAERS Safety Report 8592235 (Version 4)
Quarter: 2023Q2

REPORT INFORMATION
  Report Type: Spontaneous
  Country: FR (occurrence: FR)
  Receive Date: 20120601
  Receipt Date: 20230424
  Transmission Date: 20230721
  Serious: Yes (Death, Hospitalization, Other)
  Sender: FDA-Public Use
  Company Number: FR-BAXTER-2012BAX006355

PATIENT
  Age: 45 Year
  Sex: Male
  Weight: 92 kg

DRUGS (17)
  1. DOXORUBICIN [Suspect]
     Active Substance: DOXORUBICIN
     Indication: Lymphoma
     Dosage: CUMULATIVE DOSE: 312 MG, 52 MG, 28 DAY 6 COURSES OF R-MINI CHOP CHEMOTHERAPY. 52 MG, 1 DAY/MONTH, FO
     Route: 042
     Dates: start: 20100406, end: 20100901
  2. CYCLOPHOSPHAMIDE [Suspect]
     Active Substance: CYCLOPHOSPHAMIDE
     Indication: Lymphoma
     Dosage: CUMULATIVE DOSE: 1800 MG, FORM:UNKNOWN
     Route: 065
  3. CYCLOPHOSPHAMIDE [Suspect]
     Active Substance: CYCLOPHOSPHAMIDE
     Dosage: 3000 MG, 28 DAY, 6 COURSES OF R-MINI CHOP CHEMOTHERAPY. 600 MG, 5 DAYS/MONTH
     Route: 048
     Dates: start: 20100506, end: 20100905
  4. METHYLPREDNISOLONE [Suspect]
     Active Substance: METHYLPREDNISOLONE
     Indication: Premedication
     Dosage: 120 MG, 28 DAY
     Route: 042
     Dates: start: 20100506, end: 20100901
  5. METHYLPREDNISOLONE [Suspect]
     Active Substance: METHYLPREDNISOLONE
     Dosage: 120 MG, 2 MONTH, STOP DATE: APR2012
     Route: 042
     Dates: start: 20101116
  6. METHYLPREDNISOLONE [Suspect]
     Active Substance: METHYLPREDNISOLONE
     Dosage: 30 MG, 4 TIMES
     Route: 042
     Dates: start: 20080425, end: 20080516
  7. METHYLPREDNISOLONE [Suspect]
     Active Substance: METHYLPREDNISOLONE
     Dosage: 120 MG, 4 TOTAL,
     Route: 042
     Dates: start: 20080425, end: 20080516
  8. VINCRISTINE [Suspect]
     Active Substance: VINCRISTINE
     Indication: Non-Hodgkin^s lymphoma
     Dosage: CUMULATIVE DOSE: 12 MG, 2 MG, 28 DAY, 6 COURSES OF R-MINI CHOP CHEMOTHERAPY. 2 MG, 1 DAY/MONTH, FORM
     Route: 065
     Dates: start: 20100506, end: 20100901
  9. MABTHERA [Suspect]
     Active Substance: RITUXIMAB
     Indication: Non-Hodgkin^s lymphoma
     Dosage: CUMULATIVE DOSE: 14860 MG, 1 DOSAGE FORM, 4 TOTAL, 800 MG ON DAY1, THEN 780 MG/CYCLE, 4 CYCLES, AS P
     Route: 042
     Dates: start: 20080425, end: 20080516
  10. MABTHERA [Suspect]
     Active Substance: RITUXIMAB
     Dosage: CUMULATIVE DOSE: 14860 MG, 780 MG, 28 DAY, 6 COURSES OF R-MINI CHOP CHEMOTHERAPY. 780 MG, 1 DAY/MONT
     Route: 042
     Dates: start: 20100506, end: 20100901
  11. MABTHERA [Suspect]
     Active Substance: RITUXIMAB
     Dosage: CUMULATIVE DOSE: 14860 MG, 13 MG, 2 MONTH, MAINTENANCE TREATMENT. 13 MG EVERY 2 MONTHS, AS PER FR-AF
     Route: 042
     Dates: start: 20101116
  12. METHYLPREDNISOLONE [Suspect]
     Active Substance: METHYLPREDNISOLONE
     Indication: Lymphoma
     Dosage: CUMULATIVE DOSE: 1800 MG, 120 MG, 28 DAY, 6 COURSES OF R-MINI CHOP CHEMOTHERAPY. 120 MG, 1 DAY/MONTH
     Route: 042
     Dates: start: 20100506, end: 20100901
  13. METHYLPREDNISOLONE [Suspect]
     Active Substance: METHYLPREDNISOLONE
     Dosage: CUMULATIVE DOSE: 1800 MG, 120 MG, 2 MONTH, MAINTENANCE TREATMENT. 120 MG EVERY 2 MONTHS, FORM:UNKNOW
     Route: 042
     Dates: start: 20101116
  14. PREDNISOLONE [Suspect]
     Active Substance: PREDNISOLONE
     Indication: Non-Hodgkin^s lymphoma
     Dosage: CUMULATIVE DOSE: 2400 MG, 400 MG, 28 DAY, 6 COURSES OF R-MINI CHOP CHEMOTHERAPY. 100 MG, 4 DAYS/MONT
     Route: 048
     Dates: start: 20100507, end: 20100905
  15. DEXCHLORPHENIRAMINE MALEATE [Concomitant]
     Active Substance: DEXCHLORPHENIRAMINE MALEATE
     Indication: Premedication
     Dosage: START DATE: NOV2011, STOP DATE: APR2023
     Route: 065
  16. ACETAMINOPHEN [Concomitant]
     Active Substance: ACETAMINOPHEN
     Indication: Premedication
     Dosage: START DATE: NOV2011, STOP DATE: APR2012
     Route: 065
  17. CLONAZEPAM [Concomitant]
     Active Substance: CLONAZEPAM
     Indication: Neuralgia
     Dosage: 0.5 MG
     Route: 065

REACTIONS (6)
  - Malignant melanoma [Fatal]
  - Metastases to central nervous system [Fatal]
  - Metastases to lung [Fatal]
  - Metastases to the mediastinum [Fatal]
  - Metastases to adrenals [Fatal]
  - Malignant melanoma [Fatal]

NARRATIVE: CASE EVENT DATE: 20120401
